FAERS Safety Report 21183852 (Version 1)
Quarter: 2022Q3

REPORT INFORMATION
  Report Type: Other
  Country: None (occurrence: US)
  Receive Date: 20220808
  Receipt Date: 20220808
  Transmission Date: 20221027
  Serious: Yes (Hospitalization)
  Sender: FDA-Public Use
  Company Number: US-Eywa Pharma Inc.-2131587

PATIENT
  Age: 66 Year
  Sex: Female

DRUGS (3)
  1. BACLOFEN [Suspect]
     Active Substance: BACLOFEN
     Indication: Product used for unknown indication
     Route: 065
  2. ALPRAZOLAM [Suspect]
     Active Substance: ALPRAZOLAM
     Route: 065
  3. BISOPROLOL. [Suspect]
     Active Substance: BISOPROLOL FUMARATE
     Route: 065

REACTIONS (6)
  - Muscle spasms [Recovering/Resolving]
  - Agitation [Recovering/Resolving]
  - Somnolence [Recovering/Resolving]
  - Overdose [Recovering/Resolving]
  - Unresponsive to stimuli [Recovering/Resolving]
  - Intentional product misuse [Recovering/Resolving]
